FAERS Safety Report 5933394-6 (Version None)
Quarter: 2008Q4

REPORT INFORMATION
  Report Type: 
  Country: None (occurrence: None)
  Receive Date: 20081023
  Receipt Date: 20081010
  Transmission Date: 20090506
  Serious: Yes (Hospitalization)
  Sender: FDA-Public Use
  Company Number: 230561K08USA

PATIENT
  Age: 44 Year
  Sex: Female
  Weight: 59 kg

DRUGS (2)
  1. REBIF [Suspect]
     Indication: MULTIPLE SCLEROSIS
     Dosage: 44 MCG, 3 IN 1 WEEKS, SUBCUTANEOUS
     Route: 058
     Dates: start: 20080903, end: 20080924
  2. ADVIL [Concomitant]

REACTIONS (7)
  - CENTRAL NERVOUS SYSTEM LESION [None]
  - CYSTITIS [None]
  - KIDNEY INFECTION [None]
  - OVARIAN CYST RUPTURED [None]
  - RASH PRURITIC [None]
  - VERTIGO [None]
  - VOMITING [None]
